FAERS Safety Report 16675740 (Version 1)
Quarter: 2019Q3

REPORT INFORMATION
  Report Type: Spontaneous
  Country: FR (occurrence: FR)
  Receive Date: 20190806
  Receipt Date: 20190806
  Transmission Date: 20191004
  Serious: Yes (Other)
  Sender: FDA-Public Use
  Company Number: FR-BAXTER-2019BAX015361

PATIENT
  Sex: Male

DRUGS (7)
  1. CELLTOP 100 MG/5 ML, SOLUTION INJECTABLE POUR PERFUSION [Suspect]
     Active Substance: ETOPOSIDE
     Indication: SMALL CELL CARCINOMA
     Dosage: EVERY 4 WEEKS
     Route: 065
     Dates: start: 199401
  2. CISPLATIN. [Suspect]
     Active Substance: CISPLATIN
     Indication: SMALL CELL CARCINOMA
     Dosage: EVERY 4 WEEKS
     Route: 065
     Dates: start: 199401
  3. DOXORUBICIN [Suspect]
     Active Substance: DOXORUBICIN
     Indication: SMALL CELL LUNG CANCER METASTATIC
     Dosage: (ADRIAMYCIN) 22 MONTHS AFTER DIAGNOSIS OF SMALL CELL CARCINOMA
     Route: 065
  4. ENDOXAN 1000 MG, POUDRE POUR SOLUTIONINJECTABLE [Suspect]
     Active Substance: CYCLOPHOSPHAMIDE
     Indication: SMALL CELL CARCINOMA
     Dosage: EVERY 4 WEEKS
     Route: 065
     Dates: start: 199401
  5. DOXORUBICIN [Suspect]
     Active Substance: DOXORUBICIN
     Indication: SMALL CELL CARCINOMA
     Dosage: EVERY 4 WEEKS
     Route: 065
     Dates: start: 199401
  6. CELLTOP 100 MG/5 ML, SOLUTION INJECTABLE POUR PERFUSION [Suspect]
     Active Substance: ETOPOSIDE
     Indication: SMALL CELL LUNG CANCER METASTATIC
     Dosage: 22 MONTHS AFTER DIAGNOSIS OF SMALL CELL CARCINOMA
     Route: 065
  7. ENDOXAN 1000 MG, POUDRE POUR SOLUTIONINJECTABLE [Suspect]
     Active Substance: CYCLOPHOSPHAMIDE
     Indication: SMALL CELL LUNG CANCER METASTATIC
     Dosage: 22 MONTHS AFTER DIAGNOSIS OF SMALL CELL CARCINOMA
     Route: 065

REACTIONS (2)
  - Intervertebral discitis [Recovered/Resolved]
  - Therapy partial responder [Unknown]
